FAERS Safety Report 16316842 (Version 1)
Quarter: 2019Q2

REPORT INFORMATION
  Report Type: Report from Study
  Country: None (occurrence: BR)
  Receive Date: 20190515
  Receipt Date: 20190515
  Transmission Date: 20190711
  Serious: Yes (Other)
  Sender: FDA-Public Use
  Company Number: BR-ABBVIE-19K-020-2779240-00

PATIENT
  Sex: Female
  Weight: 60 kg

DRUGS (4)
  1. PREDNISONE. [Concomitant]
     Active Substance: PREDNISONE
     Indication: UVEITIS
  2. METICORTEN [Concomitant]
     Active Substance: PREDNISONE
     Indication: UVEITIS
  3. HUMIRA [Suspect]
     Active Substance: ADALIMUMAB
     Indication: PRODUCT USED FOR UNKNOWN INDICATION
     Dosage: FIRST WEEK OF APR 2019
     Route: 058
     Dates: start: 201904
  4. CICLOLATO [Concomitant]
     Indication: UVEITIS
     Dosage: EYE DROP

REACTIONS (5)
  - Intervertebral disc protrusion [Unknown]
  - Malaise [Unknown]
  - Rheumatoid arthritis [Unknown]
  - Pain [Unknown]
  - Uveitis [Unknown]
